FAERS Safety Report 7915767-5 (Version None)
Quarter: 2011Q4

REPORT INFORMATION
  Report Type: 
  Country: None (occurrence: None)
  Receive Date: 20111115
  Receipt Date: 20111104
  Transmission Date: 20120403
  Serious: Yes (Death, Life-Threatening, Hospitalization)
  Sender: FDA-Public Use
  Company Number: ES-GILEAD-2011-0046319

PATIENT
  Age: 50 Year
  Sex: Male

DRUGS (6)
  1. ESOMEPRAZOL                        /01479301/ [Suspect]
     Indication: PROPHYLAXIS
     Dosage: 20 MG, QD
     Route: 048
     Dates: start: 20101029, end: 20101202
  2. DIAZEPAM [Concomitant]
     Dosage: 5 MG, QD
     Route: 048
     Dates: start: 20090101, end: 20101206
  3. NEXAVAR [Suspect]
     Indication: HEPATIC NEOPLASM MALIGNANT
     Dosage: 400 MG, QD
     Route: 048
     Dates: start: 20101029, end: 20101202
  4. REYATAZ [Suspect]
     Indication: HIV INFECTION
     Dosage: 400 MG, QD
     Route: 048
     Dates: start: 20070101, end: 20101206
  5. TRUVADA [Suspect]
     Indication: HIV INFECTION
     Dosage: 245 MG, QD
     Route: 048
     Dates: start: 20080101, end: 20101206
  6. SUMIAL [Concomitant]
     Indication: PORTAL HYPERTENSION
     Dosage: 140 MG, QD
     Route: 048
     Dates: start: 20101029, end: 20101206

REACTIONS (1)
  - CHOLESTASIS [None]
